FAERS Safety Report 15515183 (Version 1)
Quarter: 2018Q4

REPORT INFORMATION
  Report Type: Spontaneous
  Country: FR (occurrence: FR)
  Receive Date: 20181017
  Receipt Date: 20181017
  Transmission Date: 20190205
  Serious: Yes (Hospitalization)
  Sender: FDA-Public Use
  Company Number: FR-TEVA-2018-FR-964998

PATIENT
  Age: 15 Year
  Sex: Female

DRUGS (3)
  1. IBUPROFENE [Concomitant]
     Active Substance: IBUPROFEN
     Indication: INTENTIONAL OVERDOSE
     Dosage: 10 DOSAGE FORMS DAILY;
     Route: 048
     Dates: start: 20180820, end: 20180820
  2. PARACETAMOL [Concomitant]
     Active Substance: ACETAMINOPHEN
     Indication: INTENTIONAL OVERDOSE
     Dosage: NP
     Route: 048
     Dates: start: 20180820, end: 20180820
  3. DIAZEPAM. [Suspect]
     Active Substance: DIAZEPAM
     Indication: INTENTIONAL OVERDOSE
     Dosage: 40 DOSAGE FORMS DAILY;
     Route: 048
     Dates: start: 20180820, end: 20180820

REACTIONS (4)
  - Somnolence [Recovering/Resolving]
  - Poisoning deliberate [Recovering/Resolving]
  - Benzodiazepine drug level increased [Recovering/Resolving]
  - Vomiting [Recovered/Resolved]

NARRATIVE: CASE EVENT DATE: 20180820
